FAERS Safety Report 25703450 (Version 2)
Quarter: 2025Q4

REPORT INFORMATION
  Report Type: Report from Study
  Country: CA (occurrence: CA)
  Receive Date: 20250820
  Receipt Date: 20251212
  Transmission Date: 20260118
  Serious: Yes (Hospitalization, Other)
  Sender: BOEHRINGER INGELHEIM
  Company Number: CA-BoehringerIngelheim-2024-BI-010784

PATIENT
  Age: 87 Year
  Sex: Male

DRUGS (2)
  1. OFEV [Suspect]
     Active Substance: NINTEDANIB
     Indication: Idiopathic pulmonary fibrosis
     Dosage: 100MG
  2. OFEV [Suspect]
     Active Substance: NINTEDANIB
     Dates: start: 20231205

REACTIONS (20)
  - Transient ischaemic attack [Recovering/Resolving]
  - Transient ischaemic attack [Recovering/Resolving]
  - COVID-19 [Recovering/Resolving]
  - Intervertebral disc protrusion [Recovering/Resolving]
  - Dehydration [Recovering/Resolving]
  - Hypomagnesaemia [Recovering/Resolving]
  - Diarrhoea [Recovered/Resolved]
  - Asthenia [Recovering/Resolving]
  - Tooth extraction [Unknown]
  - Helicobacter infection [Recovering/Resolving]
  - Tooth fracture [Not Recovered/Not Resolved]
  - Abdominal distension [Recovered/Resolved]
  - Faeces soft [Not Recovered/Not Resolved]
  - Bacterial abdominal infection [Unknown]
  - Hepatic enzyme increased [Recovered/Resolved]
  - Back injury [Recovering/Resolving]
  - Weight decreased [Unknown]
  - Abdominal distension [Not Recovered/Not Resolved]
  - Thirst [Unknown]
  - Balance disorder [Unknown]

NARRATIVE: CASE EVENT DATE: 20241210
